FAERS Safety Report 14841502 (Version 1)
Quarter: 2018Q2

REPORT INFORMATION
  Report Type: Spontaneous
  Country: US (occurrence: US)
  Receive Date: 20180503
  Receipt Date: 20180503
  Transmission Date: 20180711
  Serious: No
  Sender: FDA-Public Use
  Company Number: US-BAUSCH-BL-2017-016456

PATIENT
  Age: 7 Year
  Sex: Male

DRUGS (1)
  1. OFLOXACIN OTIC [Suspect]
     Active Substance: OFLOXACIN
     Indication: EYE INFECTION
     Route: 047
     Dates: start: 20170512, end: 20170512

REACTIONS (2)
  - Incorrect route of drug administration [Unknown]
  - Eye pain [Unknown]

NARRATIVE: CASE EVENT DATE: 20170512
